FAERS Safety Report 18925833 (Version 2)
Quarter: 2021Q1

REPORT INFORMATION
  Report Type: Other
  Country: US (occurrence: US)
  Receive Date: 20210222
  Receipt Date: 20210319
  Transmission Date: 20210420
  Serious: Yes (Other)
  Sender: FDA-Public Use
  Company Number: US-NEUROCRINE BIOSCIENCES INC.-2021NBI00664

PATIENT

DRUGS (6)
  1. PROLIXIN [Concomitant]
     Active Substance: FLUPHENAZINE HYDROCHLORIDE
     Dosage: UNK
     Route: 030
  2. GLUCOTROL [Concomitant]
     Active Substance: GLIPIZIDE
     Dosage: UNK
  3. SYMMETREL [Concomitant]
     Active Substance: AMANTADINE HYDROCHLORIDE
     Dosage: 200 MILLIGRAM BID
  4. INGREZZA [Suspect]
     Active Substance: VALBENAZINE
     Indication: TARDIVE DYSKINESIA
     Dosage: 80 MILLIGRAM QD
     Route: 048
     Dates: start: 20210111, end: 20210126
  5. DEPAKOTE [Concomitant]
     Active Substance: DIVALPROEX SODIUM
     Dosage: UNK
     Route: 048
  6. CARDIZEM CD [Concomitant]
     Active Substance: DILTIAZEM HYDROCHLORIDE
     Dosage: UNK

REACTIONS (2)
  - Urticaria [Recovered/Resolved]
  - Drug hypersensitivity [Recovered/Resolved]

NARRATIVE: CASE EVENT DATE: 20210126
